FAERS Safety Report 9171614 (Version 7)
Quarter: 2013Q4

REPORT INFORMATION
  Report Type: Report from Study
  Country: JP (occurrence: JP)
  Receive Date: 20130319
  Receipt Date: 20131205
  Transmission Date: 20140711
  Serious: Yes (Other)
  Sender: FDA-Public Use
  Company Number: JP-GLAXOSMITHKLINE-B0871145A

PATIENT
  Age: 47 Year
  Sex: Male

DRUGS (10)
  1. VOTRIENT 200MG [Suspect]
     Indication: LIPOSARCOMA
     Dosage: 800MG PER DAY
     Route: 048
     Dates: start: 20121207, end: 20121221
  2. VOTRIENT 200MG [Suspect]
     Indication: LIPOSARCOMA
     Dosage: 400MG PER DAY
     Route: 048
     Dates: start: 20130104, end: 20130118
  3. VOTRIENT 200MG [Suspect]
     Indication: LIPOSARCOMA
     Dosage: 600MG PER DAY
     Route: 048
     Dates: start: 20130118, end: 20130215
  4. VOTRIENT 200MG [Suspect]
     Indication: LIPOSARCOMA
     Dosage: 800MG PER DAY
     Route: 048
     Dates: start: 20130215, end: 20130308
  5. VOTRIENT 200MG [Suspect]
     Indication: LIPOSARCOMA
     Dosage: 600MG PER DAY
     Route: 048
     Dates: start: 20130308, end: 20130517
  6. CELECOX [Concomitant]
     Indication: PAIN
     Dosage: 100MG TWICE PER DAY
     Route: 048
  7. MUCOSTA [Concomitant]
     Indication: PAIN
     Dosage: 100MG TWICE PER DAY
     Route: 048
  8. DIHYDROCODEINE PHOSPHATE [Concomitant]
     Indication: COUGH
     Dosage: 20MG THREE TIMES PER DAY
     Route: 048
  9. METHYCOBAL [Concomitant]
     Indication: NEUROPATHY PERIPHERAL
     Dosage: 500MCG THREE TIMES PER DAY
     Route: 048
  10. HIBON [Concomitant]
     Indication: VITAMIN SUPPLEMENTATION
     Dosage: 20MG THREE TIMES PER DAY
     Route: 048

REACTIONS (7)
  - Electrocardiogram ST segment depression [Recovering/Resolving]
  - Electrocardiogram ST segment depression [Recovering/Resolving]
  - Electrocardiogram ST segment depression [Recovering/Resolving]
  - Hypertension [Recovering/Resolving]
  - Diarrhoea [Recovering/Resolving]
  - Cardiomyopathy [Recovering/Resolving]
  - White blood cell count decreased [Recovering/Resolving]
